FAERS Safety Report 16943008 (Version 1)
Quarter: 2019Q4

REPORT INFORMATION
  Report Type: Spontaneous
  Country: US (occurrence: US)
  Receive Date: 20191021
  Receipt Date: 20191021
  Transmission Date: 20200122
  Serious: Yes (Other)
  Sender: FDA-Public Use
  Company Number: NVSC2019US008063

PATIENT
  Age: 68 Year
  Sex: Female
  Weight: 82.54 kg

DRUGS (2)
  1. ENTRESTO [Suspect]
     Active Substance: SACUBITRIL\VALSARTAN
     Indication: EJECTION FRACTION ABNORMAL
  2. ENTRESTO [Suspect]
     Active Substance: SACUBITRIL\VALSARTAN
     Indication: STRESS CARDIOMYOPATHY
     Dosage: 100 MG (49/51MG EVERY 12 HOURS)
     Route: 048
     Dates: start: 20190816, end: 20190821

REACTIONS (2)
  - Cardiac flutter [Recovering/Resolving]
  - Palpitations [Recovering/Resolving]

NARRATIVE: CASE EVENT DATE: 20190816
